FAERS Safety Report 19243834 (Version 1)
Quarter: 2021Q2

REPORT INFORMATION
  Report Type: Other
  Country: GB (occurrence: GB)
  Receive Date: 20210511
  Receipt Date: 20210511
  Transmission Date: 20210717
  Serious: Yes (Other)
  Sender: FDA-Public Use
  Company Number: GB-COLLEGIUM PHARMACEUTICAL, INC.-2021CGM00516

PATIENT
  Sex: Female

DRUGS (2)
  1. TAPENTADOL [Suspect]
     Active Substance: TAPENTADOL
     Indication: PAIN
     Route: 048
  2. GRAPEFRUIT. [Suspect]
     Active Substance: GRAPEFRUIT
     Indication: ILL-DEFINED DISORDER

REACTIONS (3)
  - Dizziness [Recovered/Resolved with Sequelae]
  - Potentiating drug interaction [Unknown]
  - Nausea [Recovered/Resolved with Sequelae]
